FAERS Safety Report 5215803-3 (Version None)
Quarter: 2007Q1

REPORT INFORMATION
  Report Type: 
  Country: None (occurrence: None)
  Receive Date: 20070118
  Receipt Date: 20070108
  Transmission Date: 20070707
  Serious: Yes (Other)
  Sender: FDA-Public Use
  Company Number: 234705

PATIENT
  Age: 44 Year
  Sex: Male

DRUGS (9)
  1. AVASTIN [Suspect]
     Indication: GASTRIC CANCER
     Dosage: 5 MG/KG, Q2W, INTRAVENOUS
     Route: 042
     Dates: start: 20060901
  2. TAXOTERE [Suspect]
     Indication: GASTRIC CANCER
     Dosage: 35 MG/M2, Q3W, INTRAVENOUS
     Route: 042
     Dates: start: 20060901
  3. PROTONIX [Concomitant]
  4. AMBIEN [Concomitant]
  5. ALLEGRA [Concomitant]
  6. REMERON [Concomitant]
  7. MAG-OX (MAGNESIUM OXIDE) [Concomitant]
  8. ATIVAN [Concomitant]
  9. PHOS-NAK (PHOSPHORUS NOS, POTASSIUM NOS, SODIUM NOS) [Concomitant]

REACTIONS (1)
  - LYMPHOPENIA [None]
